FAERS Safety Report 19133729 (Version 1)
Quarter: 2021Q2

REPORT INFORMATION
  Report Type: Spontaneous
  Country: US (occurrence: US)
  Receive Date: 20210414
  Receipt Date: 20210414
  Transmission Date: 20210717
  Serious: Yes (Hospitalization, Disabling)
  Sender: FDA-Public Use
  Company Number: US-TEVA-2021-US-1901565

PATIENT
  Age: 58 Year
  Sex: Female

DRUGS (14)
  1. DOCETAXEL?SAGENT [Suspect]
     Active Substance: DOCETAXEL
     Dosage: 75MG/M2 = 165 MG
     Route: 042
     Dates: end: 20150730
  2. HERCEPTIN [Suspect]
     Active Substance: TRASTUZUMAB
     Route: 042
  3. DOCETAXEL?ACTAVIS [Suspect]
     Active Substance: DOCETAXEL
     Dosage: 75MG/M2 = 165 MG
     Route: 042
     Dates: end: 20150730
  4. HERCEPTIN [Suspect]
     Active Substance: TRASTUZUMAB
     Indication: BREAST CANCER FEMALE
     Route: 042
     Dates: start: 20150416
  5. INSULIN [Concomitant]
     Active Substance: INSULIN NOS
     Route: 065
     Dates: start: 1983
  6. ATORVASTATIN [Concomitant]
     Active Substance: ATORVASTATIN
     Dosage: 10 MILLIGRAM DAILY;
     Route: 048
     Dates: start: 2008, end: 2015
  7. DOCETAXEL?ACTAVIS [Suspect]
     Active Substance: DOCETAXEL
     Indication: BREAST CANCER FEMALE
     Dosage: NUMBER OF CYCLE ?06, FREQUENCY ?EVERY THREE WEEKS
     Route: 042
     Dates: start: 20150416
  8. ATORVASTATIN [Concomitant]
     Active Substance: ATORVASTATIN
     Route: 065
     Dates: start: 201701
  9. IRON [Concomitant]
     Active Substance: IRON
     Indication: BLOOD IRON DECREASED
     Dosage: 65 MILLIGRAM DAILY;
     Route: 065
  10. PERTUZUMAB. [Suspect]
     Active Substance: PERTUZUMAB
     Indication: BREAST CANCER FEMALE
     Route: 042
     Dates: start: 20150416
  11. CARBOPLATIN. [Suspect]
     Active Substance: CARBOPLATIN
     Indication: BREAST CANCER FEMALE
     Route: 042
  12. DOCETAXEL?SAGENT [Suspect]
     Active Substance: DOCETAXEL
     Indication: BREAST CANCER FEMALE
     Dosage: NUMBER OF CYCLE ?06, FREQUENCY ?EVERY THREE WEEKS
     Route: 042
     Dates: start: 20150416
  13. PERTUZUMAB. [Suspect]
     Active Substance: PERTUZUMAB
     Route: 042
  14. ASPIRIN. [Concomitant]
     Active Substance: ASPIRIN
     Dosage: 325 MILLIGRAM DAILY;
     Route: 048

REACTIONS (8)
  - Anaemia [Unknown]
  - Alopecia areata [Not Recovered/Not Resolved]
  - Hair texture abnormal [Not Recovered/Not Resolved]
  - Fatigue [Recovering/Resolving]
  - Diarrhoea [Recovering/Resolving]
  - Urinary tract infection [Unknown]
  - Hair colour changes [Not Recovered/Not Resolved]
  - Nausea [Unknown]

NARRATIVE: CASE EVENT DATE: 20150430
